FAERS Safety Report 5816229-1 (Version None)
Quarter: 2008Q3

REPORT INFORMATION
  Report Type: 
  Country: None (occurrence: None)
  Receive Date: 20080721
  Receipt Date: 20080714
  Transmission Date: 20090109
  Serious: Yes (Hospitalization)
  Sender: FDA-Public Use
  Company Number: SE-JNJFOC-20080703074

PATIENT
  Sex: Male

DRUGS (2)
  1. RISPERDAL [Suspect]
  2. RISPERDAL [Suspect]
     Indication: ANGER

REACTIONS (5)
  - HYPERPYREXIA [None]
  - PANCYTOPENIA [None]
  - PROTEIN URINE PRESENT [None]
  - URINE KETONE BODY PRESENT [None]
  - VIRAL INFECTION [None]
